FAERS Safety Report 5062408-3 (Version None)
Quarter: 2006Q3

REPORT INFORMATION
  Report Type: 
  Country: None (occurrence: None)
  Receive Date: 20060721
  Receipt Date: 20060713
  Transmission Date: 20061208
  Serious: Yes (Hospitalization)
  Sender: FDA-Public Use
  Company Number: 2006087824

PATIENT
  Age: 43 Year
  Sex: Male

DRUGS (4)
  1. FRAGMIN [Suspect]
     Indication: THROMBOSIS PROPHYLAXIS
     Dosage: 5000 I.U. (5000 I.U., DAILY) SUBCUTANEOUS
     Route: 058
     Dates: start: 20060606
  2. METHOPROLOL [Concomitant]
  3. FRAXIPARIN (HEPARIN-FRACTION, CALCIUM SALT) [Concomitant]
  4. ENALAPRIL MALEATE [Concomitant]

REACTIONS (1)
  - PULMONARY EMBOLISM [None]
